FAERS Safety Report 8565652-3 (Version None)
Quarter: 2012Q3

REPORT INFORMATION
  Report Type: 
  Country: None (occurrence: None)
  Receive Date: 20120803
  Receipt Date: 20120727
  Transmission Date: 20120928
  Serious: No
  Sender: FDA-Public Use
  Company Number: US-009507513-2012SP000176

PATIENT

DRUGS (1)
  1. NUVARING [Suspect]
     Indication: CONTRACEPTION
     Dates: start: 20090303, end: 20090308

REACTIONS (3)
  - THROMBOPHLEBITIS SUPERFICIAL [None]
  - BACK PAIN [None]
  - PAIN IN EXTREMITY [None]
